FAERS Safety Report 12474987 (Version 2)
Quarter: 2017Q1

REPORT INFORMATION
  Report Type: Report from Study
  Country: US (occurrence: US)
  Receive Date: 20160617
  Receipt Date: 20170209
  Transmission Date: 20170428
  Serious: No
  Sender: FDA-Public Use
  Company Number: PHEH2016US014205

PATIENT
  Sex: Female

DRUGS (1)
  1. COSENTYX [Suspect]
     Active Substance: SECUKINUMAB
     Indication: PSORIASIS
     Dosage: 150 MG, QMO (EVERY 28 DAYS)
     Route: 058
     Dates: start: 20160307

REACTIONS (3)
  - Psoriasis [Unknown]
  - Incorrect dose administered [Unknown]
  - Drug ineffective [Unknown]
